FAERS Safety Report 20831968 (Version 1)
Quarter: 2022Q2

REPORT INFORMATION
  Report Type: 
  Country: None (occurrence: None)
  Receive Date: 20220516
  Receipt Date: 20220516
  Transmission Date: 20220721
  Serious: No
  Sender: FDA-Public Use
  Company Number: US-ROCHE-2908539

PATIENT
  Age: 35 Year
  Weight: 88.530 kg

DRUGS (2)
  1. HEMLIBRA [Suspect]
     Active Substance: EMICIZUMAB-KXWH
     Dosage: DOSE STRENGTH: 50MG/ML
     Dates: start: 20210723
  2. HEMLIBRA [Suspect]
     Active Substance: EMICIZUMAB-KXWH
     Dosage: DOSE STRENGTH: 150 MG/ML
     Dates: start: 202108

REACTIONS (3)
  - Haemorrhage [None]
  - Weight increased [None]
  - Haemorrhage [None]

NARRATIVE: CASE EVENT DATE: 20220429
